FAERS Safety Report 15046531 (Version 1)
Quarter: 2018Q2

REPORT INFORMATION
  Report Type: Spontaneous
  Country: ES (occurrence: ES)
  Receive Date: 20180621
  Receipt Date: 20180621
  Transmission Date: 20180711
  Serious: Yes (Life-Threatening, Hospitalization, Other)
  Sender: FDA-Public Use
  Company Number: ES-TEVA-2018-ES-910544

PATIENT
  Age: 76 Year
  Sex: Female
  Weight: 51 kg

DRUGS (8)
  1. ARAVA 10 MG COMPRIMIDOS RECUBIERTOS CON PELICULA [Concomitant]
     Dosage: 1 DOSAGE FORMS DAILY;
     Route: 048
     Dates: start: 20160720
  2. PROLIA 60 MG SOLUCION INYECTABLE EN UNA JERINGA PRECARGADA [Concomitant]
     Dates: start: 20141222
  3. DILIBAN 75 MG/650 MG COMPRIMIDOS, 60 COMPRIMIDOS (BLISTER) [Interacting]
     Active Substance: ACETAMINOPHEN\TRAMADOL HYDROCHLORIDE
     Indication: ANALGESIC THERAPY
     Route: 048
     Dates: start: 20180411
  4. CELEBREX [Interacting]
     Active Substance: CELECOXIB
     Route: 048
     Dates: start: 20180406, end: 20180411
  5. PANTOPRAZOL 20 MG COMPRIMIDO [Suspect]
     Active Substance: PANTOPRAZOLE SODIUM
     Dosage: 1 DOSAGE FORMS DAILY;
     Route: 048
     Dates: start: 20180406
  6. CO-DIOVAN 160 MG/12,5 MG COMPRIMIDOS RECUBIERTOS CON PELICULA [Interacting]
     Active Substance: HYDROCHLOROTHIAZIDE\VALSARTAN
     Dosage: 1 DOSAGE FORMS DAILY;
     Route: 048
     Dates: start: 20130704
  7. MASTICAL D UNIDIA 1000 MG/ 800 UI COMPRIMIDOS MASTICABLES [Concomitant]
     Dosage: 1 DOSAGE FORMS DAILY;
     Route: 048
     Dates: start: 20140526
  8. SINTROM [Concomitant]
     Active Substance: ACENOCOUMAROL
     Dosage: 1 DOSAGE FORMS DAILY;
     Route: 048
     Dates: start: 20180125

REACTIONS (4)
  - Drug interaction [Unknown]
  - Depressed level of consciousness [Recovered/Resolved]
  - Hyponatraemia [Recovered/Resolved]
  - Generalised tonic-clonic seizure [Recovered/Resolved]

NARRATIVE: CASE EVENT DATE: 20180414
